FAERS Safety Report 4324535-5 (Version None)
Quarter: 2004Q1

REPORT INFORMATION
  Report Type: 
  Country: None (occurrence: None)
  Receive Date: 20040326
  Receipt Date: 20040227
  Transmission Date: 20041129
  Serious: No
  Sender: FDA-Public Use
  Company Number: US-GLAXOSMITHKLINE-A0500380A

PATIENT
  Age: 80 Year
  Sex: Female

DRUGS (3)
  1. ADVAIR DISKUS 100/50 [Suspect]
     Dosage: 1PUFF TWICE PER DAY
     Route: 055
  2. LEVOXYL [Concomitant]
  3. NORVASC [Concomitant]

REACTIONS (3)
  - COUGH [None]
  - HOARSENESS [None]
  - RESPIRATORY TRACT CONGESTION [None]
